FAERS Safety Report 20979959 (Version 1)
Quarter: 2022Q2

REPORT INFORMATION
  Report Type: Report from Study
  Country: US (occurrence: US)
  Receive Date: 20220620
  Receipt Date: 20220620
  Transmission Date: 20220721
  Serious: Yes (Hospitalization, Other)
  Sender: FDA-Public Use
  Company Number: US-GILEAD-2022-0585720

PATIENT
  Age: 24 Year
  Sex: Female

DRUGS (17)
  1. AZTREONAM LYSINE [Suspect]
     Active Substance: AZTREONAM LYSINE
     Indication: Cystic fibrosis
     Dosage: 75 MG, TID FOR 28 DAYS ON AND 28 DAYS OFF
     Route: 055
     Dates: start: 202109
  2. CELLCEPT [Concomitant]
     Active Substance: MYCOPHENOLATE MOFETIL
     Dosage: 500 MG TABLET
     Dates: start: 20220217
  3. NIFEDIPINE [Concomitant]
     Active Substance: NIFEDIPINE
     Dosage: ER 30 MG TABLET SA
     Dates: start: 20220217
  4. VALCYTE [Concomitant]
     Active Substance: VALGANCICLOVIR HYDROCHLORIDE
     Dosage: 450 MG TABLET
     Dates: start: 20210901
  5. CREON [Concomitant]
     Active Substance: PANCRELIPASE AMYLASE\PANCRELIPASE LIPASE\PANCRELIPASE PROTEASE
     Dosage: 12K-38K-60 CAPSULE DR
     Dates: start: 20210901
  6. CARVEDILOL [Concomitant]
     Active Substance: CARVEDILOL
     Dosage: 12.5 MG TABLET
     Dates: start: 20210901
  7. MEPRON [Concomitant]
     Active Substance: ATOVAQUONE
     Dosage: 750 MG/5ML ORAL SUSP
     Dates: start: 20210901
  8. LAMOTRIGINE [Concomitant]
     Active Substance: LAMOTRIGINE
     Dosage: 100 MG TABLET
     Dates: start: 20210901
  9. METOPROLOL SUCCINATE [Concomitant]
     Active Substance: METOPROLOL SUCCINATE
     Dosage: 50 MG TAB ER 24H
     Dates: start: 20210901
  10. PROGRAF [Concomitant]
     Active Substance: TACROLIMUS
     Dosage: 1 MG CAPSULE
     Dates: start: 20210901
  11. ALBUTEROL SULFATE [Concomitant]
     Active Substance: ALBUTEROL SULFATE
     Dosage: 0.63MG/3ML VIAL-NEB
     Dates: start: 20210901
  12. AZITHROMYCIN [Concomitant]
     Active Substance: AZITHROMYCIN
     Dosage: 250 MG TABLET
     Dates: start: 20210901
  13. PREDNISONE [Concomitant]
     Active Substance: PREDNISONE
     Dosage: 10 MG TABLET
     Dates: start: 20210901
  14. VITAMIN D3 [Concomitant]
     Active Substance: CHOLECALCIFEROL
     Dosage: 100000/G POWDER
     Dates: start: 20210901
  15. ABILIFY [Concomitant]
     Active Substance: ARIPIPRAZOLE
     Dosage: 5 MG TABLET
     Dates: start: 20210901
  16. FAMOTIDINE [Concomitant]
     Active Substance: FAMOTIDINE
     Dosage: 10 MG TABLET
     Dates: start: 20210901
  17. OMEPRAZOLE SODIUM [Concomitant]
     Active Substance: OMEPRAZOLE SODIUM
     Dosage: BICARBONATE 20MG-1.1G CAPSULE
     Dates: start: 20210901

REACTIONS (2)
  - Transplant rejection [Unknown]
  - Rhinovirus infection [Unknown]

NARRATIVE: CASE EVENT DATE: 20220520
